FAERS Safety Report 8287673-0 (Version None)
Quarter: 2012Q2

REPORT INFORMATION
  Report Type: 
  Country: None (occurrence: None)
  Receive Date: 20120416
  Receipt Date: 20120413
  Transmission Date: 20120825
  Serious: Yes (Death)
  Sender: FDA-Public Use
  Company Number: PHHY2012NL005649

PATIENT
  Sex: Female
  Weight: 90 kg

DRUGS (7)
  1. MOVICOLON [Concomitant]
  2. TAMOXIFEN CITRATE [Concomitant]
     Dosage: 40 MG, UNK
  3. ZOMETA [Suspect]
     Dosage: 4 MG,/100ML/28 DAYS
     Route: 042
     Dates: start: 20111202
  4. ACETAMINOPHEN [Concomitant]
  5. ZOMETA [Suspect]
     Dosage: 4 MG,/100 ML/ 28 DAYS
     Route: 042
     Dates: start: 20101011
  6. ZOMETA [Suspect]
     Indication: METASTASES TO BONE
     Dosage: 4 MG, ONCE EVERY 4 WEEKS
     Route: 042
     Dates: start: 20101001
  7. ZOMETA [Suspect]
     Dosage: 4 MG/100/28 DAYS
     Route: 042
     Dates: start: 20120102

REACTIONS (2)
  - NEOPLASM MALIGNANT [None]
  - NEOPLASM PROGRESSION [None]
